FAERS Safety Report 5223878-0 (Version None)
Quarter: 2007Q1

REPORT INFORMATION
  Report Type: 
  Country: None (occurrence: None)
  Receive Date: 20070130
  Receipt Date: 20070118
  Transmission Date: 20070707
  Serious: Yes (Other)
  Sender: FDA-Public Use
  Company Number: PHBS2006JP18344

PATIENT
  Age: 14 Year
  Sex: Female

DRUGS (5)
  1. AZATHIOPRINE [Suspect]
     Indication: CONGENITAL APLASTIC ANAEMIA
     Route: 048
  2. NEORAL [Suspect]
     Indication: CONGENITAL APLASTIC ANAEMIA
     Route: 065
  3. STEROIDS NOS [Suspect]
     Indication: CONGENITAL APLASTIC ANAEMIA
     Dosage: 10 MG/D
  4. STEROIDS NOS [Suspect]
     Dosage: 9 MG/D
  5. PREDONINE [Suspect]
     Indication: CONGENITAL APLASTIC ANAEMIA

REACTIONS (7)
  - ANAEMIA [None]
  - BLOOD PRODUCT TRANSFUSION DEPENDENT [None]
  - DEPRESSIVE SYMPTOM [None]
  - DISEASE PROGRESSION [None]
  - HAEMOGLOBIN DECREASED [None]
  - MENORRHAGIA [None]
  - MENTAL DISORDER [None]
